FAERS Safety Report 4899571-0 (Version None)
Quarter: 2006Q1

REPORT INFORMATION
  Report Type: 
  Country: None (occurrence: None)
  Receive Date: 20060118
  Receipt Date: 20050629
  Transmission Date: 20060701
  Serious: No
  Sender: FDA-Public Use
  Company Number: 2005001241

PATIENT
  Age: 60 Year
  Sex: Female

DRUGS (3)
  1. TARCEVA [Suspect]
     Indication: BREAST CANCER
     Dosage: 150 MG (QD), ORAL
     Route: 048
  2. CAPECITABINE (CAPECITABINE) [Concomitant]
  3. HERCEPTIN [Concomitant]

REACTIONS (2)
  - BLISTER [None]
  - MUCOSAL INFLAMMATION [None]
